FAERS Safety Report 9745331 (Version 1)
Quarter: 2013Q4

REPORT INFORMATION
  Report Type: Spontaneous
  Country: US (occurrence: None)
  Receive Date: 20131206
  Receipt Date: 20131206
  Transmission Date: 20140711
  Serious: Yes (Disabling, Other)
  Sender: FDA-Public Use
  Company Number: None

PATIENT
  Age: 45 Year
  Sex: Female
  Weight: 90.72 kg

DRUGS (1)
  1. LUPRON [Suspect]
     Indication: ENDOMETRIOSIS
     Dosage: 1 SHOT
     Route: 030

REACTIONS (8)
  - Hypertension [None]
  - Neck pain [None]
  - Migraine [None]
  - Memory impairment [None]
  - Dyspnoea [None]
  - Hot flush [None]
  - Malaise [None]
  - Toxicity to various agents [None]
